FAERS Safety Report 5699841-2 (Version None)
Quarter: 2008Q2

REPORT INFORMATION
  Report Type: 
  Country: None (occurrence: None)
  Receive Date: 20080410
  Receipt Date: 20080312
  Transmission Date: 20081010
  Serious: No
  Sender: FDA-Public Use
  Company Number: US-BOEHRINGER INGELHEIM GMBH, GERMANY-2008-BP-03883BP

PATIENT
  Age: 59 Year
  Sex: Female
  Weight: 78 kg

DRUGS (22)
  1. MIRAPEX [Suspect]
     Indication: RESTLESS LEGS SYNDROME
     Route: 048
     Dates: start: 20071112
  2. PAXIL CR [Concomitant]
  3. OMEPRAZOLE [Concomitant]
  4. NANONEX AD [Concomitant]
  5. VICODIN [Concomitant]
  6. VAGIFEM [Concomitant]
  7. CYMBALTA [Concomitant]
  8. KLOR-CON [Concomitant]
  9. SULINDAC [Concomitant]
  10. ALB INH [Concomitant]
     Route: 055
  11. ADVAIR HFA [Concomitant]
  12. NITROFURANTOIN [Concomitant]
  13. AMBIEN [Concomitant]
  14. TRIAMTERENE AND HYDROCHLOROTHIAZIDE [Concomitant]
  15. MEGA HYDRA AD [Concomitant]
  16. GREEN TEA [Concomitant]
  17. FAMVIR [Concomitant]
  18. OMEGA 3 [Concomitant]
  19. VITAMIN D [Concomitant]
  20. KLONOPIN [Concomitant]
  21. LYRICA [Concomitant]
  22. REQUIP [Concomitant]

REACTIONS (3)
  - AGITATION [None]
  - MOOD ALTERED [None]
  - SUICIDAL IDEATION [None]
